FAERS Safety Report 7787005-8 (Version None)
Quarter: 2011Q3

REPORT INFORMATION
  Report Type: 
  Country: None (occurrence: None)
  Receive Date: 20110927
  Receipt Date: 20110913
  Transmission Date: 20111222
  Serious: Yes (Hospitalization)
  Sender: FDA-Public Use
  Company Number: 1045229

PATIENT
  Age: 71 Year
  Sex: Male

DRUGS (2)
  1. OXALIPLATIN [Suspect]
     Indication: COLON CANCER
     Dosage: AROUND 27 MG, INTRAVENOUS DRIP
     Route: 041
     Dates: start: 20110825
  2. LEUCOVORIN CALCIUM [Suspect]
     Indication: COLON CANCER
     Dosage: INTRAVENOUS (NOT OTHERWISE SPECIFIED)
     Route: 042
     Dates: start: 20110825

REACTIONS (3)
  - DERMATITIS EXFOLIATIVE [None]
  - HYPERSENSITIVITY [None]
  - TACHYCARDIA [None]
